FAERS Safety Report 17463307 (Version 2)
Quarter: 2020Q2

REPORT INFORMATION
  Report Type: Report from Study
  Country: US (occurrence: US)
  Receive Date: 20200226
  Receipt Date: 20200408
  Transmission Date: 20200713
  Serious: No
  Sender: FDA-Public Use
  Company Number: NVSC2020US050021

PATIENT
  Age: 74 Year
  Sex: Male

DRUGS (1)
  1. TREPROSTINIL. [Suspect]
     Active Substance: TREPROSTINIL
     Indication: PULMONARY ARTERIAL HYPERTENSION
     Dosage: 25 NG/KG/MIN
     Route: 042
     Dates: start: 20200305

REACTIONS (2)
  - Pain [Unknown]
  - Sensitive skin [Unknown]

NARRATIVE: CASE EVENT DATE: 202003
